FAERS Safety Report 6486800-5 (Version None)
Quarter: 2009Q4

REPORT INFORMATION
  Report Type: 
  Country: None (occurrence: None)
  Receive Date: 20091209
  Receipt Date: 20091209
  Transmission Date: 20100525
  Serious: Yes (Death)
  Sender: FDA-Public Use
  Company Number: None

PATIENT
  Age: 67 Year
  Sex: Male
  Weight: 88 kg

DRUGS (3)
  1. DECITABINE [Suspect]
     Indication: MYELODYSPLASTIC SYNDROME
     Dosage: 42 MG Q28DAYS X 5DAYS IV 20MG/M2
     Route: 042
  2. CYTARABINE [Suspect]
     Dosage: 42MG Q28DAYS X 5DAYS IV 20MG/M2
     Route: 042
  3. NEUPOGEN [Suspect]
     Dosage: 5 MCG/KG

REACTIONS (10)
  - ACUTE RESPIRATORY FAILURE [None]
  - ANAEMIA [None]
  - CARDIAC FAILURE CONGESTIVE [None]
  - DISEASE PROGRESSION [None]
  - GENERAL PHYSICAL HEALTH DETERIORATION [None]
  - HYPERKALAEMIA [None]
  - REFUSAL OF TREATMENT BY PATIENT [None]
  - RENAL FAILURE ACUTE [None]
  - TACHYPNOEA [None]
  - TREATMENT NONCOMPLIANCE [None]
